FAERS Safety Report 23611447 (Version 1)
Quarter: 2024Q1

REPORT INFORMATION
  Report Type: Spontaneous
  Country: US (occurrence: US)
  Receive Date: 20240308
  Receipt Date: 20240308
  Transmission Date: 20240410
  Serious: No
  Sender: FDA-Public Use
  Company Number: US-PFIZER INC-202400057474

PATIENT
  Age: 70 Year
  Sex: Female

DRUGS (2)
  1. PAXLOVID [Suspect]
     Active Substance: NIRMATRELVIR\RITONAVIR
     Indication: COVID-19 treatment
     Dosage: ON THE REGULAR DOSE
     Dates: end: 20240305
  2. QUETIAPINE [Concomitant]
     Active Substance: QUETIAPINE
     Dosage: STOPPED WHILE TAKING PAXLOVID

REACTIONS (1)
  - Dysgeusia [Not Recovered/Not Resolved]
